FAERS Safety Report 9940992 (Version 1)
Quarter: 2014Q1

REPORT INFORMATION
  Report Type: Report from Study
  Country: US (occurrence: US)
  Receive Date: 20140303
  Receipt Date: 20140303
  Transmission Date: 20141002
  Serious: Yes (Hospitalization)
  Sender: FDA-Public Use
  Company Number: US-TEVA-465821USA

PATIENT
  Age: 17 Year
  Sex: Female

DRUGS (2)
  1. CLARAVIS [Suspect]
     Route: 048
  2. IBUPROFEN [Suspect]

REACTIONS (2)
  - Depression [Recovered/Resolved]
  - Intentional overdose [Unknown]
